FAERS Safety Report 12429624 (Version 1)
Quarter: 2016Q2

REPORT INFORMATION
  Report Type: Report from Study
  Country: US (occurrence: US)
  Receive Date: 20160602
  Receipt Date: 20160602
  Transmission Date: 20160815
  Serious: Yes (Death)
  Sender: FDA-Public Use
  Company Number: US-ASTRAZENECA-2016SE57285

PATIENT
  Age: 17056 Day
  Sex: Female

DRUGS (1)
  1. TAGRISSO [Suspect]
     Active Substance: OSIMERTINIB
     Indication: LUNG NEOPLASM MALIGNANT
     Dosage: 80.0DF UNKNOWN
     Route: 048
     Dates: start: 20151124

REACTIONS (1)
  - Death [Fatal]

NARRATIVE: CASE EVENT DATE: 20160514
